FAERS Safety Report 8810668 (Version 1)
Quarter: 2012Q4

REPORT INFORMATION
  Report Type: Spontaneous
  Country: US (occurrence: None)
  Receive Date: 20120924
  Receipt Date: 20120924
  Transmission Date: 20130627
  Serious: Yes (Other)
  Sender: FDA-Public Use
  Company Number: None

PATIENT
  Age: 51 Year
  Sex: Female
  Weight: 45.36 kg

DRUGS (1)
  1. BRILINTA [Suspect]
     Indication: POST MI
     Route: 048
     Dates: start: 20120911, end: 20120914

REACTIONS (6)
  - Dyspnoea [None]
  - Migraine [None]
  - Neck pain [None]
  - Back pain [None]
  - Cough [None]
  - Anxiety [None]
